FAERS Safety Report 15776801 (Version 1)
Quarter: 2018Q4

REPORT INFORMATION
  Report Type: Spontaneous
  Country: US (occurrence: US)
  Receive Date: 20181229
  Receipt Date: 20181229
  Transmission Date: 20190205
  Serious: Yes (Other)
  Sender: FDA-Public Use
  Company Number: None

PATIENT
  Age: 52 Year
  Sex: Male
  Weight: 123.75 kg

DRUGS (11)
  1. PROSCAR [Concomitant]
     Active Substance: FINASTERIDE
  2. PRISTIQ EXTENDED-RELEASE [Concomitant]
     Active Substance: DESVENLAFAXINE SUCCINATE
  3. METFORMIN [Concomitant]
     Active Substance: METFORMIN HYDROCHLORIDE
  4. CENTRUM 50 + MEN [Concomitant]
  5. BENICAR [Concomitant]
     Active Substance: OLMESARTAN MEDOXOMIL
  6. ACEBUTOLOL [Suspect]
     Active Substance: ACEBUTOLOL
     Indication: HYPERTENSION
     Dosage: ?          QUANTITY:1 CAPSULE(S);?
     Route: 048
  7. TRICOR [Concomitant]
     Active Substance: FENOFIBRATE
  8. WELLBUTRIN [Concomitant]
     Active Substance: BUPROPION HYDROCHLORIDE
  9. VISTARIL [Concomitant]
     Active Substance: HYDROXYZINE PAMOATE
  10. ACEBUTOLOL [Concomitant]
     Active Substance: ACEBUTOLOL
  11. LIPITOT [Concomitant]

REACTIONS (4)
  - Nausea [None]
  - Diarrhoea [None]
  - Product complaint [None]
  - Product odour abnormal [None]

NARRATIVE: CASE EVENT DATE: 20181004
